FAERS Safety Report 25804228 (Version 1)
Quarter: 2025Q3

REPORT INFORMATION
  Report Type: Spontaneous
  Country: GB (occurrence: GB)
  Receive Date: 20250915
  Receipt Date: 20250915
  Transmission Date: 20251020
  Serious: Yes (Death, Hospitalization, Other)
  Sender: REGENERON
  Company Number: GB-REGENERON PHARMACEUTICALS, INC.-2025-145744

PATIENT
  Sex: Male

DRUGS (1)
  1. LIBTAYO [Suspect]
     Active Substance: CEMIPLIMAB-RWLC
     Indication: Squamous cell carcinoma of skin
     Dates: start: 20250702

REACTIONS (5)
  - Death [Fatal]
  - Muscular weakness [Unknown]
  - Dysphagia [Unknown]
  - Dyspnoea [Unknown]
  - Myositis [Unknown]

NARRATIVE: CASE EVENT DATE: 20250725
